FAERS Safety Report 11247047 (Version 1)
Quarter: 2015Q3

REPORT INFORMATION
  Report Type: Spontaneous
  Country: US (occurrence: None)
  Receive Date: 20150706
  Receipt Date: 20150706
  Transmission Date: 20151125
  Serious: No
  Sender: FDA-Public Use
  Company Number: None

PATIENT
  Age: 63 Year
  Weight: 54.43 kg

DRUGS (2)
  1. CIPRO [Suspect]
     Active Substance: CIPROFLOXACIN HYDROCHLORIDE
  2. ENBREL [Concomitant]
     Active Substance: ETANERCEPT
     Indication: URINARY TRACT INFECTION
     Route: 048
     Dates: start: 20150310, end: 20150317

REACTIONS (1)
  - Tendon pain [None]

NARRATIVE: CASE EVENT DATE: 20150704
